FAERS Safety Report 26010850 (Version 1)
Quarter: 2025Q4

REPORT INFORMATION
  Report Type: Spontaneous
  Country: US (occurrence: None)
  Receive Date: 20251106
  Receipt Date: 20251106
  Transmission Date: 20260118
  Serious: Yes (Hospitalization)
  Sender: FDA-CTU
  Company Number: None

PATIENT
  Age: 66 Year
  Sex: Male

DRUGS (5)
  1. H.P. ACTHAR [Suspect]
     Active Substance: CORTICOTROPIN
     Indication: Multiple sclerosis
     Dosage: OTHER QUANTITY : 80UNITS;?FREQUENCY : DAILY;?
  2. MORPHINE [Suspect]
     Active Substance: MORPHINE
  3. BACLOFEN [Suspect]
     Active Substance: BACLOFEN
  4. GABAPENTIN [Suspect]
     Active Substance: GABAPENTIN
  5. CLONAZEPAM [Suspect]
     Active Substance: CLONAZEPAM

REACTIONS (3)
  - Somnolence [None]
  - Hypophagia [None]
  - Therapy change [None]
